FAERS Safety Report 21594346 (Version 2)
Quarter: 2023Q1

REPORT INFORMATION
  Report Type: Spontaneous
  Country: US (occurrence: None)
  Receive Date: 20221115
  Receipt Date: 20230321
  Transmission Date: 20230418
  Serious: Yes (Other)
  Sender: FDA-Public Use
  Company Number: US-ROCHE-3170282

PATIENT
  Age: 81 Year
  Sex: Female

DRUGS (2)
  1. VABYSMO [Suspect]
     Active Substance: FARICIMAB-SVOA
     Indication: Product used for unknown indication
     Dosage: LAST DOSES BEING 15-JUL-2022 FOR HER LEFT EYE?1-AUG-2022 FOR HER RIGHT EYE
     Route: 050
     Dates: start: 20220614
  2. VABYSMO [Suspect]
     Active Substance: FARICIMAB-SVOA
     Route: 050
     Dates: start: 20220801, end: 20220801

REACTIONS (4)
  - Uveitis [Unknown]
  - Ocular hyperaemia [Unknown]
  - Keratic precipitates [Unknown]
  - Anterior chamber cell [Unknown]

NARRATIVE: CASE EVENT DATE: 20220827
